FAERS Safety Report 6444989-8 (Version None)
Quarter: 2009Q4

REPORT INFORMATION
  Report Type: 
  Country: None (occurrence: None)
  Receive Date: 20091116
  Receipt Date: 20091116
  Transmission Date: 20100525
  Serious: Yes (Hospitalization)
  Sender: FDA-Public Use
  Company Number: None

PATIENT
  Sex: Male
  Weight: 60.6 kg

DRUGS (3)
  1. CARBOPLATIN [Suspect]
     Dosage: 1900 MG
  2. ERBITUX [Suspect]
     Dosage: 4930 MG
  3. TAXOL [Suspect]
     Dosage: 802 MG

REACTIONS (3)
  - DEHYDRATION [None]
  - LUNG NEOPLASM MALIGNANT [None]
  - PNEUMONITIS [None]
